FAERS Safety Report 13210304 (Version 1)
Quarter: 2017Q1

REPORT INFORMATION
  Report Type: Report from Study
  Country: US (occurrence: US)
  Receive Date: 20170210
  Receipt Date: 20170210
  Transmission Date: 20170428
  Serious: Yes (Death)
  Sender: FDA-Public Use
  Company Number: US-TAIHO ONCOLOGY INC-EU-2017-00110

PATIENT
  Age: 61 Year
  Sex: Female
  Weight: 77.18 kg

DRUGS (14)
  1. LASIX [Concomitant]
     Active Substance: FUROSEMIDE
     Dosage: NI
  2. POTASSIUM CHLORIDE. [Concomitant]
     Active Substance: POTASSIUM CHLORIDE
     Dosage: NI
  3. FENTANYL. [Concomitant]
     Active Substance: FENTANYL
     Dosage: NI
  4. LEVOTHYROXINE SODIUM. [Concomitant]
     Active Substance: LEVOTHYROXINE SODIUM
     Dosage: NI
  5. SINGULAIR [Concomitant]
     Active Substance: MONTELUKAST SODIUM
     Dosage: NI
  6. SOTALOL HYDROCHLORIDE. [Concomitant]
     Active Substance: SOTALOL HYDROCHLORIDE
     Dosage: NI
  7. COUMADIN [Concomitant]
     Active Substance: WARFARIN SODIUM
     Dosage: NI
  8. LONSURF [Suspect]
     Active Substance: TIPIRACIL HYDROCHLORIDE\TRIFLURIDINE
     Indication: RECTAL CANCER
     Dosage: CYCLE 1
     Route: 048
     Dates: start: 20170113, end: 20170120
  9. IRON [Concomitant]
     Active Substance: IRON
     Dosage: NI
  10. MEDROL [Concomitant]
     Active Substance: METHYLPREDNISOLONE
     Dosage: NI
  11. NASONEX [Concomitant]
     Active Substance: MOMETASONE FUROATE
     Dosage: NI
  12. OXYCODONE [Concomitant]
     Active Substance: OXYCODONE
     Dosage: NI
  13. DILTIAZEM. [Concomitant]
     Active Substance: DILTIAZEM
     Dosage: NI
  14. SPIRONOLACTONE. [Concomitant]
     Active Substance: SPIRONOLACTONE
     Dosage: NI

REACTIONS (8)
  - Pain [Unknown]
  - Death [Fatal]
  - Asthenia [Unknown]
  - Fluid retention [Unknown]
  - Nausea [Not Recovered/Not Resolved]
  - Malaise [Unknown]
  - Fatigue [Unknown]
  - Disease progression [Unknown]

NARRATIVE: CASE EVENT DATE: 201701
